FAERS Safety Report 21312257 (Version 1)
Quarter: 2022Q3

REPORT INFORMATION
  Report Type: Spontaneous
  Country: US (occurrence: None)
  Receive Date: 20220909
  Receipt Date: 20220909
  Transmission Date: 20221026
  Serious: No
  Sender: FDA-Public Use
  Company Number: US-ARIS GLOBAL-202205-0867

PATIENT
  Sex: Male

DRUGS (14)
  1. OXERVATE [Suspect]
     Active Substance: CENEGERMIN-BKBJ
     Indication: Neurotrophic keratopathy
     Route: 047
     Dates: start: 20220301, end: 20220424
  2. OXERVATE [Suspect]
     Active Substance: CENEGERMIN-BKBJ
     Route: 047
     Dates: start: 20220425
  3. SYSTANE (HYPROMELLOSE 2910 (4000 MPA.S)) [Concomitant]
     Active Substance: HYPROMELLOSE 2910 (4000 MPA.S)
     Dosage: 0.3 %-0.4%
  4. ALPRAZOLAM [Concomitant]
     Active Substance: ALPRAZOLAM
  5. TRAZODONE HCL [Concomitant]
     Active Substance: TRAZODONE HYDROCHLORIDE
  6. OMEPRAZOLE [Concomitant]
     Active Substance: OMEPRAZOLE
  7. PREDNISOLONE-NEPAFENAC [Concomitant]
  8. NAMENDA XR [Concomitant]
     Active Substance: MEMANTINE HYDROCHLORIDE
     Dosage: 24 HOUR PROLONGED RELEASE
  9. ELIQUIS [Concomitant]
     Active Substance: APIXABAN
  10. DILTIAZEM [Concomitant]
     Active Substance: DILTIAZEM
     Dosage: CONTROLLED-RELEASE CAPSULES.
  11. COZAAR [Concomitant]
     Active Substance: LOSARTAN POTASSIUM
  12. CHOLESTYRAMINE [Concomitant]
     Active Substance: CHOLESTYRAMINE
  13. ALLOPURINOL [Concomitant]
     Active Substance: ALLOPURINOL
  14. ACYCLOVIR [Concomitant]
     Active Substance: ACYCLOVIR

REACTIONS (1)
  - Eye pain [Unknown]
